FAERS Safety Report 4703929-X (Version None)
Quarter: 2005Q2

REPORT INFORMATION
  Report Type: 
  Country: None (occurrence: None)
  Receive Date: 20050630
  Receipt Date: 20050113
  Transmission Date: 20051028
  Serious: Yes (Death, Hospitalization)
  Sender: FDA-Public Use
  Company Number: US-MERCK-0501USA02991

PATIENT
  Age: 5 Year
  Sex: Male

DRUGS (4)
  1. ELSPAR [Suspect]
     Indication: ACUTE LYMPHOCYTIC LEUKAEMIA
     Route: 030
  2. VINCRISTINE SULFATE [Concomitant]
     Route: 065
  3. PREDNISONE [Concomitant]
     Route: 065
  4. METHOTREXATE [Concomitant]
     Route: 065

REACTIONS (11)
  - ARTERIAL DISORDER [None]
  - ARTERIAL HAEMORRHAGE [None]
  - BACTERIAL CULTURE POSITIVE [None]
  - BACTERIAL INFECTION [None]
  - CANDIDIASIS [None]
  - EXSANGUINATION [None]
  - MULTI-ORGAN FAILURE [None]
  - PANCREATIC PSEUDOCYST [None]
  - PANCREATITIS NECROTISING [None]
  - PNEUMONIA ASPERGILLUS [None]
  - VENTRICULAR FIBRILLATION [None]
